FAERS Safety Report 17225258 (Version 3)
Quarter: 2020Q1

REPORT INFORMATION
  Report Type: Report from Study
  Country: US (occurrence: US)
  Receive Date: 20200102
  Receipt Date: 20200205
  Transmission Date: 20200409
  Serious: Yes (Hospitalization)
  Sender: FDA-Public Use
  Company Number: US-PFIZER INC-2019559088

PATIENT
  Age: 17 Year
  Sex: Male
  Weight: 88.7 kg

DRUGS (14)
  1. VINCRISTINE SULFATE. [Suspect]
     Active Substance: VINCRISTINE SULFATE
     Indication: ACUTE LYMPHOCYTIC LEUKAEMIA
     Dosage: 2 MG, D15, D22, D43 AND D50
     Route: 042
     Dates: start: 20191028, end: 20191211
  2. MERCAPTOPURINE. [Suspect]
     Active Substance: MERCAPTOPURINE
     Dosage: TABLET,100 MG MON-THU; 150 MG FRI-SAT
     Route: 048
     Dates: start: 20191226
  3. VANCOMYCIN HCL [Suspect]
     Active Substance: VANCOMYCIN HYDROCHLORIDE
     Indication: PNEUMONIA
     Dosage: UNK
     Route: 042
     Dates: start: 20191127, end: 20191203
  4. METHOTREXATE SODIUM. [Suspect]
     Active Substance: METHOTREXATE SODIUM
     Indication: ACUTE LYMPHOCYTIC LEUKAEMIA
     Dosage: 15 MG, D1 AND D8
     Route: 037
     Dates: start: 20191014, end: 20191211
  5. METHOTREXATE SODIUM. [Suspect]
     Active Substance: METHOTREXATE SODIUM
     Dosage: 15 MG, D1 AND D8
     Route: 037
     Dates: start: 20191226
  6. MERCAPTOPURINE. [Suspect]
     Active Substance: MERCAPTOPURINE
     Indication: ACUTE LYMPHOCYTIC LEUKAEMIA
     Dosage: TABLET,100 MG MON-THU; 150 MG FRI-SAT
     Route: 048
     Dates: start: 20191015, end: 20191211
  7. CYTARABINE. [Suspect]
     Active Substance: CYTARABINE
     Indication: ACUTE LYMPHOCYTIC LEUKAEMIA
     Dosage: 150 MG, FOR 4D AT D1, 8, 29 AND 36
     Route: 042
     Dates: start: 20191015
  8. INCB018424 [Suspect]
     Active Substance: RUXOLITINIB
     Dosage: 100 MG, TABLET, 2X/DAY
     Route: 048
     Dates: start: 20191226
  9. VINCRISTINE SULFATE. [Suspect]
     Active Substance: VINCRISTINE SULFATE
     Dosage: 2 MG, D15, D22, D43 AND D50
     Route: 042
     Dates: start: 20191226
  10. VORICONAZOLE. [Suspect]
     Active Substance: VORICONAZOLE
     Indication: ANTIFUNGAL TREATMENT
     Dosage: UNK
     Route: 048
     Dates: start: 20191203, end: 20191204
  11. INCB018424 [Suspect]
     Active Substance: RUXOLITINIB
     Indication: ACUTE LYMPHOCYTIC LEUKAEMIA
     Dosage: 100 MG, TABLET, 2X/DAY
     Route: 048
     Dates: start: 20191015, end: 20191211
  12. CYCLOPHOSPHAMIDE. [Suspect]
     Active Substance: CYCLOPHOSPHAMIDE
     Indication: ACUTE LYMPHOCYTIC LEUKAEMIA
     Dosage: 2020 MG, Q29D
     Route: 042
     Dates: start: 20191015
  13. PEGASPARGASE [Suspect]
     Active Substance: PEGASPARGASE
     Indication: ACUTE LYMPHOCYTIC LEUKAEMIA
     Dosage: 5100 IU, D15 AND D43, IU/M2
     Route: 042
     Dates: start: 20191028
  14. AMBISOME [Suspect]
     Active Substance: AMPHOTERICIN B
     Indication: FEBRILE NEUTROPENIA
     Dosage: UNK
     Route: 042
     Dates: start: 20191130, end: 20191203

REACTIONS (6)
  - Febrile neutropenia [Recovered/Resolved]
  - Sepsis [Recovered/Resolved]
  - Pneumonia [Recovering/Resolving]
  - Acute kidney injury [Recovering/Resolving]
  - Pancreatitis [Recovering/Resolving]
  - Device related infection [Recovered/Resolved]

NARRATIVE: CASE EVENT DATE: 20191126
